FAERS Safety Report 6292488-9 (Version None)
Quarter: 2009Q3

REPORT INFORMATION
  Report Type: 
  Country: None (occurrence: None)
  Receive Date: 20090731
  Receipt Date: 20070725
  Transmission Date: 20100115
  Serious: Yes (Other)
  Sender: FDA-Public Use
  Company Number: US-ASTRAZENECA-2007UW02044

PATIENT
  Age: 204 Month
  Sex: Female
  Weight: 93.9 kg

DRUGS (13)
  1. SEROQUEL [Suspect]
     Dosage: 50-100 MG
     Route: 048
     Dates: start: 20030211, end: 20041103
  2. SEROQUEL [Suspect]
     Dosage: 100 MG, DISPENSED
     Route: 048
     Dates: start: 20041126
  3. BUSPIRONE HCL [Concomitant]
     Dosage: 15-30 MG
     Dates: start: 20010101, end: 20050919
  4. TRAZODONE HCL [Concomitant]
     Dates: start: 20010427, end: 20061019
  5. RITALIN LA [Concomitant]
     Dates: start: 20030211
  6. BUSPAR [Concomitant]
     Dates: start: 20001231
  7. PROPO-N/APAP [Concomitant]
     Dosage: 100-650 MG, DISPENSED
     Dates: start: 20030625
  8. TRAZODONE HCL [Concomitant]
     Dates: start: 20010427
  9. SPRINTEC [Concomitant]
     Dates: start: 20031021
  10. SOD SUL/SULF [Concomitant]
     Dosage: 10-5%, DISPENSED
     Dates: start: 20020107
  11. ACETAMINOPHEN AND HYDROCODONE BITARTRATE [Concomitant]
     Dosage: 500 MG DISPENSED
     Dates: start: 20020506
  12. ANUCORT HC [Concomitant]
     Dosage: 25 MG DISPENSED
     Dates: start: 20040313
  13. LEXAPRO [Concomitant]
     Dates: start: 20070427

REACTIONS (4)
  - ABORTION SPONTANEOUS [None]
  - SKIN DISORDER [None]
  - TYPE 1 DIABETES MELLITUS [None]
  - TYPE 2 DIABETES MELLITUS [None]
